FAERS Safety Report 9148647 (Version 1)
Quarter: 2013Q1

REPORT INFORMATION
  Report Type: Spontaneous
  Country: US (occurrence: US)
  Receive Date: 20130308
  Receipt Date: 20130308
  Transmission Date: 20140127
  Serious: Yes (Other)
  Sender: FDA-Public Use
  Company Number: US-ENDO PHARMACEUTICALS INC.-OPCR20121869

PATIENT
  Sex: Male
  Weight: 81.72 kg

DRUGS (4)
  1. OPANA ER [Suspect]
     Indication: PAIN
     Route: 048
     Dates: start: 201205
  2. OXYMORPHONE HYDROCHLORIDE [Concomitant]
     Indication: PAIN
     Route: 048
  3. BACLOFEN TABLETS [Concomitant]
     Indication: PRODUCT USED FOR UNKNOWN INDICATION
     Dosage: UNKNOWN
     Route: 048
  4. OPANA ER [Concomitant]
     Indication: PAIN
     Route: 048
     Dates: end: 201205

REACTIONS (4)
  - Drug abuse [Unknown]
  - Drug screen positive [Unknown]
  - Insomnia [Not Recovered/Not Resolved]
  - Drug effect decreased [Not Recovered/Not Resolved]
